FAERS Safety Report 7132779-2 (Version None)
Quarter: 2010Q4

REPORT INFORMATION
  Report Type: 
  Country: None (occurrence: None)
  Receive Date: 20101202
  Receipt Date: 20101122
  Transmission Date: 20110411
  Serious: No
  Sender: FDA-Public Use
  Company Number: US-PFIZER INC-2010155512

PATIENT
  Sex: Female

DRUGS (2)
  1. PRISTIQ [Suspect]
     Dosage: 100 MG, UNK
     Route: 048
  2. ESTROGEL [Suspect]
     Indication: HORMONE THERAPY
     Dosage: UNK

REACTIONS (1)
  - DRUG SCREEN POSITIVE [None]
